FAERS Safety Report 16867429 (Version 1)
Quarter: 2019Q3

REPORT INFORMATION
  Report Type: Spontaneous
  Country: US (occurrence: US)
  Receive Date: 20190930
  Receipt Date: 20190930
  Transmission Date: 20191005
  Serious: No
  Sender: FDA-Public Use
  Company Number: US-MYLANLABS-2019M1087406

PATIENT
  Age: 37 Year
  Sex: Female
  Weight: 73 kg

DRUGS (1)
  1. LEVOTHYROXINE SODIUM TABLETS, USP [Suspect]
     Active Substance: LEVOTHYROXINE SODIUM
     Indication: AUTOIMMUNE THYROIDITIS
     Dosage: DAILY
     Route: 048

REACTIONS (1)
  - Antigliadin antibody positive [Not Recovered/Not Resolved]

NARRATIVE: CASE EVENT DATE: 20190913
